FAERS Safety Report 13015557 (Version 1)
Quarter: 2016Q4

REPORT INFORMATION
  Report Type: Report from Study
  Country: DK (occurrence: DK)
  Receive Date: 20161212
  Receipt Date: 20161212
  Transmission Date: 20170207
  Serious: Yes (Hospitalization)
  Sender: FDA-Public Use
  Company Number: DK-BAXTER-2016BAX061109

PATIENT
  Age: 51 Year
  Sex: Female

DRUGS (52)
  1. PERTUZUMAB [Suspect]
     Active Substance: PERTUZUMAB
     Indication: BREAST CANCER
     Dosage: LOADING DOSE
     Route: 042
     Dates: start: 20150601
  2. PERTUZUMAB [Suspect]
     Active Substance: PERTUZUMAB
     Dosage: MOST RECENT DOSE AS PER THE PROTOCOL.
     Route: 042
     Dates: start: 20150623
  3. TRASTUZUMAB [Suspect]
     Active Substance: TRASTUZUMAB
     Dosage: MOST RECENT DOSE PRIOR TO EVENT CHOLECYSTITIS
     Route: 042
     Dates: start: 20151106
  4. PARACETAMOL [Concomitant]
     Active Substance: ACETAMINOPHEN
     Route: 048
     Dates: start: 20151120, end: 20151124
  5. DICLOFENAC [Concomitant]
     Active Substance: DICLOFENAC
     Indication: ARTHRITIS
  6. SELEXID [Concomitant]
     Active Substance: AMDINOCILLIN PIVOXIL HYDROCHLORIDE
     Indication: PRODUCT USED FOR UNKNOWN INDICATION
     Route: 065
  7. EPIRUBICIN [Suspect]
     Active Substance: EPIRUBICIN
     Dosage: MOST RECENT DOSE PRIOR TO THE EVENT CHOLELITHIASIS
     Route: 042
     Dates: start: 20150511
  8. PERTUZUMAB [Suspect]
     Active Substance: PERTUZUMAB
     Dosage: MOST RECENT DOSE PRIOR TO THE EVENT CHOLECYSTITIS
     Route: 042
     Dates: start: 20151106
  9. TRASTUZUMAB [Suspect]
     Active Substance: TRASTUZUMAB
     Dosage: FOR 17 CYCLES
     Route: 042
  10. BISOPROLOL [Concomitant]
     Active Substance: BISOPROLOL
     Indication: HYPERTENSION
     Route: 048
     Dates: start: 2013
  11. MYCOSTATIN [Concomitant]
     Active Substance: NYSTATIN
     Indication: STOMATITIS
     Dosage: 1ML/CM3
     Route: 048
     Dates: start: 20150524, end: 20150702
  12. BRENTAN [Concomitant]
     Active Substance: HYDROCORTISONE\MICONAZOLE
     Indication: VULVOVAGINAL PRURITUS
     Dosage: 20 UNIT NOT REPORTED
     Route: 062
     Dates: start: 20150523, end: 20150525
  13. BONYL [Concomitant]
     Active Substance: NAPROXEN
     Indication: SPONDYLITIS
     Route: 054
     Dates: start: 20150516, end: 20150516
  14. DOCETAXEL. [Suspect]
     Active Substance: DOCETAXEL
     Dosage: MOST RECENT DOSE AS PER THE PROTOCOL
     Route: 042
     Dates: start: 20150623
  15. IMOZOP [Concomitant]
     Active Substance: ZOPICLONE
     Indication: INSOMNIA
     Route: 048
     Dates: start: 20150217, end: 20150416
  16. MOTILIUM [Concomitant]
     Active Substance: DOMPERIDONE
     Indication: NAUSEA
     Route: 048
     Dates: start: 20150306, end: 20150924
  17. METRONIDAZOLE. [Concomitant]
     Active Substance: METRONIDAZOLE
     Indication: INFECTION
     Route: 048
     Dates: start: 20150516, end: 20150702
  18. CEFUROXIME. [Concomitant]
     Active Substance: CEFUROXIME
     Indication: INFECTION
     Route: 042
     Dates: start: 20150516, end: 20150517
  19. DIFLUCAN [Concomitant]
     Active Substance: FLUCONAZOLE
     Indication: STOMATITIS
     Route: 048
     Dates: start: 20150608, end: 20150611
  20. TRASTUZUMAB [Suspect]
     Active Substance: TRASTUZUMAB
     Indication: BREAST CANCER
     Dosage: LOADING DOSE
     Route: 042
     Dates: start: 20150601
  21. ONDANSETRON [Concomitant]
     Active Substance: ONDANSETRON
     Indication: NAUSEA
     Route: 048
     Dates: start: 20150306, end: 20150924
  22. PREDNISOLONE. [Concomitant]
     Active Substance: PREDNISOLONE
     Dosage: DAY TWO TO FOUR OF EACH CYCLE
     Route: 048
     Dates: start: 20150307, end: 20150924
  23. ATORVASTATIN [Concomitant]
     Active Substance: ATORVASTATIN
     Indication: HYPERCHOLESTEROLAEMIA
     Route: 048
     Dates: start: 20121127, end: 20150516
  24. TEMESTA [Concomitant]
     Active Substance: LORAZEPAM
     Indication: NAUSEA
     Route: 048
     Dates: start: 20150417, end: 20150924
  25. INNOHEP [Concomitant]
     Active Substance: TINZAPARIN SODIUM
     Indication: DEEP VEIN THROMBOSIS
     Route: 065
     Dates: start: 20150606, end: 20150610
  26. FLUOROURACIL. [Suspect]
     Active Substance: FLUOROURACIL
     Indication: BREAST CANCER
     Dosage: CYCLES 1-4
     Route: 042
     Dates: start: 20150306
  27. EPIRUBICIN [Suspect]
     Active Substance: EPIRUBICIN
     Indication: BREAST CANCER
     Dosage: CYCLES 1-4
     Route: 042
     Dates: start: 20150306
  28. PARACETAMOL [Concomitant]
     Active Substance: ACETAMINOPHEN
     Indication: ARTHRITIS
     Route: 048
     Dates: start: 20100421
  29. CONFORTID [Concomitant]
     Indication: SPONDYLITIS
     Route: 054
     Dates: start: 20150515, end: 20150524
  30. DICLOFENAC [Concomitant]
     Active Substance: DICLOFENAC
     Indication: SPONDYLITIS
     Route: 048
     Dates: start: 20150516, end: 20150606
  31. TAZOCIN [Concomitant]
     Active Substance: PIPERACILLIN SODIUM\TAZOBACTAM SODIUM
     Indication: INFECTION
     Route: 048
     Dates: start: 20150517, end: 20150525
  32. BONYL [Concomitant]
     Active Substance: NAPROXEN
     Indication: ARTHRITIS
  33. SENDOXAN [Suspect]
     Active Substance: CYCLOPHOSPHAMIDE
     Indication: BREAST CANCER
     Dosage: CYCLES 1 TO 4
     Route: 042
     Dates: start: 20150306
  34. SENDOXAN [Suspect]
     Active Substance: CYCLOPHOSPHAMIDE
     Dosage: MOST RECENT DOSE PRIOR TO THE EVENT CHOLELITHIASIS
     Route: 042
     Dates: start: 20150511
  35. FLUOROURACIL. [Suspect]
     Active Substance: FLUOROURACIL
     Dosage: MOST RECENT DOSE PRIOR TO THE EVENT CHOLELITHIASIS
     Route: 042
     Dates: start: 20150511
  36. TRASTUZUMAB [Suspect]
     Active Substance: TRASTUZUMAB
     Dosage: MOST RECENT DOSE AS PER THE PROTOCOL
     Route: 042
     Dates: start: 20150623
  37. DOCETAXEL. [Suspect]
     Active Substance: DOCETAXEL
     Dosage: MOST RECENT DOSE PRIOR TO CHOLECYSTITIS
     Route: 042
     Dates: start: 20150803
  38. APREPITANT. [Concomitant]
     Active Substance: APREPITANT
     Dosage: DAY TWO AND DAY THREE OF EACH CYCLE
     Route: 048
     Dates: start: 20150307, end: 20150924
  39. DICLON [Concomitant]
     Active Substance: DICLOFENAC SODIUM
     Indication: ABDOMINAL PAIN UPPER
     Route: 048
     Dates: start: 20151120, end: 20151124
  40. FRAGMIN [Concomitant]
     Active Substance: DALTEPARIN SODIUM
     Indication: DEEP VEIN THROMBOSIS
     Route: 058
     Dates: start: 20150610, end: 20151120
  41. LANSOPRAZOLE. [Concomitant]
     Active Substance: LANSOPRAZOLE
     Indication: GASTRITIS
     Route: 048
     Dates: start: 20150327, end: 20150924
  42. PREDNISOLONE. [Concomitant]
     Active Substance: PREDNISOLONE
     Indication: NAUSEA
     Dosage: DAY ONE OF EACH CYCLE
     Route: 048
     Dates: start: 20150306, end: 20150924
  43. CIPROFLOXACIN. [Concomitant]
     Active Substance: CIPROFLOXACIN
     Indication: CHOLELITHIASIS
     Route: 048
     Dates: start: 20150525, end: 20150529
  44. METFORMIN [Concomitant]
     Active Substance: METFORMIN HYDROCHLORIDE
     Indication: DIABETES MELLITUS
     Route: 048
     Dates: start: 20150612
  45. PHENERGAN [Concomitant]
     Active Substance: PROMETHAZINE HYDROCHLORIDE
     Indication: INSOMNIA
     Route: 048
     Dates: start: 20150417
  46. PERTUZUMAB [Suspect]
     Active Substance: PERTUZUMAB
     Dosage: MAINTAIN DOSE FOR 17 CYCLES
     Route: 042
  47. DOCETAXEL. [Suspect]
     Active Substance: DOCETAXEL
     Indication: BREAST CANCER
     Dosage: 75MG/M2 FIRST DOSE, CYCLES 5 TO 8
     Route: 042
     Dates: start: 20150601
  48. DOCETAXEL. [Suspect]
     Active Substance: DOCETAXEL
     Dosage: DOSE REDUCED
     Route: 042
  49. IBUMETIN [Concomitant]
     Active Substance: IBUPROFEN
     Indication: ARTHRITIS
     Route: 048
     Dates: start: 20100421, end: 20150525
  50. APREPITANT. [Concomitant]
     Active Substance: APREPITANT
     Indication: NAUSEA
     Dosage: DAY ONE OF EACH CYCLE
     Route: 048
     Dates: start: 20150306, end: 20150924
  51. CONFORTID [Concomitant]
     Indication: ARTHRITIS
  52. CANESTEN [Concomitant]
     Active Substance: CLOTRIMAZOLE
     Indication: VULVOVAGINAL PRURITUS
     Route: 062
     Dates: start: 20150525, end: 20150525

REACTIONS (3)
  - Cholelithiasis [Recovered/Resolved]
  - Cholecystitis [Recovered/Resolved]
  - Diarrhoea [Recovered/Resolved]

NARRATIVE: CASE EVENT DATE: 20150307
